FAERS Safety Report 4853386-8 (Version None)
Quarter: 2005Q4

REPORT INFORMATION
  Report Type: 
  Country: None (occurrence: None)
  Receive Date: 20051214
  Receipt Date: 20051005
  Transmission Date: 20060501
  Serious: Yes (Hospitalization, Disabling)
  Sender: FDA-Public Use
  Company Number: US-MERCK-0510USA04640

PATIENT
  Age: 51 Year
  Sex: Female
  Weight: 61 kg

DRUGS (13)
  1. VIOXX [Suspect]
     Indication: ARTHRITIS
     Route: 048
     Dates: start: 19991001, end: 20040901
  2. EVISTA [Concomitant]
     Route: 065
  3. ALPRAZOLAM [Concomitant]
     Route: 065
  4. TRAZODONE HYDROCHLORIDE [Concomitant]
     Route: 065
  5. ZOLOFT [Concomitant]
     Route: 065
  6. ZANAFLEX [Concomitant]
     Route: 065
  7. NEUROTONIN CAPSULES [Concomitant]
     Route: 065
  8. ZOCOR [Concomitant]
     Route: 065
  9. TOPROL-XL [Concomitant]
     Route: 065
  10. QUININE SULFATE [Concomitant]
     Route: 065
  11. BUTALBITAL [Concomitant]
     Route: 065
  12. NEXIUM [Concomitant]
     Route: 065
  13. TIZANIDINE HYDROCHLORIDE [Concomitant]
     Route: 065

REACTIONS (10)
  - AMNESIA [None]
  - ARTHROPATHY [None]
  - CEREBROVASCULAR ACCIDENT [None]
  - COGNITIVE DISORDER [None]
  - DEPRESSION [None]
  - FIBROMYALGIA [None]
  - KIDNEY INFECTION [None]
  - PANCREATITIS [None]
  - SINUS DISORDER [None]
  - SPINAL FUSION SURGERY [None]
